FAERS Safety Report 4599503-9 (Version None)
Quarter: 2005Q1

REPORT INFORMATION
  Report Type: 
  Country: None (occurrence: None)
  Receive Date: 20050303
  Receipt Date: 20050218
  Transmission Date: 20050727
  Serious: Yes (Disabling)
  Sender: FDA-Public Use
  Company Number: HQ3492226JUL2002

PATIENT
  Age: 44 Year
  Sex: Male
  Weight: 86.71 kg

DRUGS (6)
  1. PROTONIX [Suspect]
     Indication: GASTROOESOPHAGEAL REFLUX DISEASE
     Dosage: 40 MG 1X PER 1 DAY, ORAL
     Route: 048
     Dates: start: 20020101, end: 20020605
  2. VALIUM [Concomitant]
  3. SOMA [Concomitant]
  4. SEREVENT [Concomitant]
  5. ALBUTEROL [Concomitant]
  6. ALBUTEROL [Concomitant]

REACTIONS (53)
  - ABDOMINAL DISTENSION [None]
  - ABNORMAL DREAMS [None]
  - ACNE [None]
  - AMNESIA [None]
  - ANGER [None]
  - ARTHRALGIA [None]
  - ARTHRITIS [None]
  - ASCITES [None]
  - ASTHENIA [None]
  - AUTOIMMUNE DISORDER [None]
  - BLOOD URINE PRESENT [None]
  - BONE PAIN [None]
  - CONFUSIONAL STATE [None]
  - CONSTIPATION [None]
  - DIABETES MELLITUS [None]
  - DRUG EFFECT DECREASED [None]
  - DRUG INTOLERANCE [None]
  - DRY MOUTH [None]
  - DYSGEUSIA [None]
  - ERECTILE DYSFUNCTION [None]
  - FATIGUE [None]
  - FEELING ABNORMAL [None]
  - GENERALISED OEDEMA [None]
  - GROIN PAIN [None]
  - HEPATIC PAIN [None]
  - HEPATITIS [None]
  - HEPATITIS B [None]
  - IMMUNOGLOBULINS INCREASED [None]
  - INFLUENZA LIKE ILLNESS [None]
  - JOINT SWELLING [None]
  - LIBIDO DECREASED [None]
  - LIVER DISORDER [None]
  - LOSS OF CONSCIOUSNESS [None]
  - MIGRAINE [None]
  - MOOD ALTERED [None]
  - MOOD SWINGS [None]
  - MYOSITIS [None]
  - NIGHTMARE [None]
  - NONSPECIFIC REACTION [None]
  - PAIN [None]
  - PAIN IN EXTREMITY [None]
  - PHOTOSENSITIVITY REACTION [None]
  - PROSTATIC PAIN [None]
  - PYREXIA [None]
  - RASH [None]
  - RENAL CYST [None]
  - RENAL IMPAIRMENT [None]
  - RENAL PAIN [None]
  - SYSTEMIC LUPUS ERYTHEMATOSUS [None]
  - THINKING ABNORMAL [None]
  - TINNITUS [None]
  - VISION BLURRED [None]
  - WEIGHT INCREASED [None]
